FAERS Safety Report 7578165-2 (Version None)
Quarter: 2011Q2

REPORT INFORMATION
  Report Type: 
  Country: None (occurrence: None)
  Receive Date: 20110628
  Receipt Date: 20110621
  Transmission Date: 20111010
  Serious: Yes (Hospitalization)
  Sender: FDA-Public Use
  Company Number: A0932233A

PATIENT
  Age: 74 Year
  Sex: Male

DRUGS (3)
  1. AVANDIA [Suspect]
     Route: 048
     Dates: start: 20010904, end: 20061030
  2. LIPITOR [Concomitant]
  3. TRIAMTERENE [Concomitant]

REACTIONS (1)
  - MYOCARDIAL INFARCTION [None]
